FAERS Safety Report 23996937 (Version 2)
Quarter: 2024Q3

REPORT INFORMATION
  Report Type: Spontaneous
  Country: US (occurrence: US)
  Receive Date: 20240620
  Receipt Date: 20240728
  Transmission Date: 20241016
  Serious: Yes (Other)
  Sender: BRISTOL MYERS SQUIBB
  Company Number: US-BRISTOL-MYERS SQUIBB COMPANY-2024-099682

PATIENT
  Age: 79 Year
  Sex: Male
  Weight: 75.11 kg

DRUGS (15)
  1. REVLIMID [Suspect]
     Active Substance: LENALIDOMIDE
     Indication: Plasma cell myeloma
     Dosage: 10 MG
     Dates: start: 20200217, end: 20231202
  2. REVLIMID [Suspect]
     Active Substance: LENALIDOMIDE
     Dosage: 25 MG
  3. ACYCLOVIR [Concomitant]
     Active Substance: ACYCLOVIR
     Indication: Plasma cell myeloma
     Dosage: 14
     Dates: start: 20200217
  4. NINLARO [Concomitant]
     Active Substance: IXAZOMIB CITRATE
     Indication: Product used for unknown indication
     Dates: start: 20200427
  5. SIMVASTATIN [Concomitant]
     Active Substance: SIMVASTATIN
     Indication: Product used for unknown indication
     Dosage: 7
  6. CENTRUM SILVER MULTIVITAMIN MULTIMINERAL PLUS LUTEIN + LYCOPENE [Concomitant]
     Indication: Product used for unknown indication
     Dosage: (HAS 1000 VIT D)
  7. METHYLCOBALAMIN [Concomitant]
     Active Substance: METHYLCOBALAMIN
     Indication: Product used for unknown indication
     Dosage: 7
  8. METHYLCELLULOSES [Concomitant]
     Active Substance: METHYLCELLULOSES
     Indication: Product used for unknown indication
     Dosage: 7 (4 CAPLETS) ALT. WITH FIBER CAPSULES (5)
  9. D-3 FEROL [Concomitant]
     Indication: Product used for unknown indication
     Dosage: (1000IU) 7
  10. PEPCID [Concomitant]
     Active Substance: FAMOTIDINE
     Indication: Product used for unknown indication
     Dosage: 7
  11. ELOTUZUMAB [Concomitant]
     Active Substance: ELOTUZUMAB
     Indication: Plasma cell myeloma
     Dosage: SHOT
  12. DEXAMETHASONE [Concomitant]
     Active Substance: DEXAMETHASONE
     Indication: Plasma cell myeloma
  13. ASPIRIN [Concomitant]
     Active Substance: ASPIRIN
     Indication: Plasma cell myeloma
     Dosage: COATED
  14. ZOMETA [Concomitant]
     Active Substance: ZOLEDRONIC ACID
     Indication: Plasma cell myeloma
     Dosage: ABOUT EVERY 3 MONTHS
  15. FISH OIL [Concomitant]
     Active Substance: FISH OIL
     Indication: Product used for unknown indication
     Dosage: 14

REACTIONS (8)
  - Pruritus [Unknown]
  - Vomiting [Unknown]
  - Cough [Recovered/Resolved]
  - Chest pain [Recovered/Resolved]
  - Musculoskeletal stiffness [Unknown]
  - Diarrhoea [Unknown]
  - Blood immunoglobulin A increased [Unknown]
  - Arthralgia [Unknown]

NARRATIVE: CASE EVENT DATE: 20210906
